FAERS Safety Report 8362251-3 (Version None)
Quarter: 2012Q2

REPORT INFORMATION
  Report Type: 
  Country: None (occurrence: None)
  Receive Date: 20120515
  Receipt Date: 20120514
  Transmission Date: 20120825
  Serious: Yes (Life-Threatening, Disabling)
  Sender: FDA-Public Use
  Company Number: US-BAYER-2012-047542

PATIENT
  Age: 58 Year
  Sex: Male

DRUGS (3)
  1. LEVITRA [Suspect]
     Indication: ERECTILE DYSFUNCTION
     Dosage: 10 MG, UNK
     Route: 048
     Dates: start: 20100101, end: 20120512
  2. ALCOHOL [Concomitant]
  3. ZOCOR [Concomitant]

REACTIONS (5)
  - HYPERHIDROSIS [None]
  - SEIZURE LIKE PHENOMENA [None]
  - TREMOR [None]
  - HYPOTENSION [None]
  - LOSS OF CONSCIOUSNESS [None]
